FAERS Safety Report 18992125 (Version 1)
Quarter: 2021Q1

REPORT INFORMATION
  Report Type: Spontaneous
  Country: KR (occurrence: KR)
  Receive Date: 20210310
  Receipt Date: 20210310
  Transmission Date: 20210420
  Serious: Yes (Life-Threatening)
  Sender: FDA-Public Use
  Company Number: KR-FRESENIUS KABI-FK202102227

PATIENT
  Age: 32 Year
  Sex: Female

DRUGS (1)
  1. REMIFENTANIL (MANUFACTURER UNKNOWN) [Suspect]
     Active Substance: REMIFENTANIL
     Indication: INDUCTION OF ANAESTHESIA
     Dosage: 20?ML SYRINGE CONTAINING REMIFENTANIL (0.1 MG/ML) ON A SYRINGE PUMP
     Route: 042

REACTIONS (4)
  - Loss of consciousness [Recovered/Resolved]
  - Device issue [Unknown]
  - Syringe issue [Unknown]
  - Overdose [Recovered/Resolved]
